FAERS Safety Report 24987343 (Version 1)
Quarter: 2025Q1

REPORT INFORMATION
  Report Type: Spontaneous
  Country: US (occurrence: US)
  Receive Date: 20250219
  Receipt Date: 20250219
  Transmission Date: 20250409
  Serious: No
  Sender: ABBVIE
  Company Number: US-ABBVIE-6137793

PATIENT
  Sex: Female

DRUGS (1)
  1. ELAHERE [Suspect]
     Active Substance: MIRVETUXIMAB SORAVTANSINE-GYNX
     Indication: Product used for unknown indication
     Route: 042

REACTIONS (1)
  - Keratopathy [Not Recovered/Not Resolved]
